FAERS Safety Report 4387076-5 (Version None)
Quarter: 2004Q2

REPORT INFORMATION
  Report Type: 
  Country: None (occurrence: None)
  Receive Date: 20040630
  Receipt Date: 20040303
  Transmission Date: 20050107
  Serious: No
  Sender: FDA-Public Use
  Company Number: US-GLAXOSMITHKLINE-A0501158A

PATIENT
  Sex: Female

DRUGS (12)
  1. ADVAIR HFA [Suspect]
     Indication: DRUG USE FOR UNKNOWN INDICATION
     Dosage: 1PUFF TWICE PER DAY
     Route: 055
     Dates: start: 20040122
  2. SURFAK [Concomitant]
     Dosage: 240MG TWICE PER DAY
     Route: 048
  3. LIPITOR [Concomitant]
     Dosage: 5MG PER DAY
     Route: 048
  4. GLUCOPHAGE [Concomitant]
     Dosage: 500MG PER DAY
     Route: 048
     Dates: start: 19930326
  5. PROVENTIL [Concomitant]
     Dosage: 90MCG PER DAY
     Route: 055
  6. AEROBID [Concomitant]
     Dosage: 500MCG TWICE PER DAY
     Route: 055
     Dates: start: 20030812
  7. PRILOSEC [Concomitant]
     Dosage: 20MG PER DAY
     Route: 048
  8. VITAMIN E [Concomitant]
     Dosage: 400MG PER DAY
     Route: 065
     Dates: start: 20040312
  9. VITAMIN C [Concomitant]
     Route: 065
  10. LOTRISONE [Concomitant]
     Route: 065
  11. ALLEGRA [Concomitant]
     Dosage: 180MG PER DAY
     Route: 065
  12. DYAZIDE [Concomitant]
     Dosage: 1CAP PER DAY
     Route: 048
     Dates: start: 20040326

REACTIONS (1)
  - DRUG INEFFECTIVE [None]
